FAERS Safety Report 9859261 (Version 1)
Quarter: 2014Q1

REPORT INFORMATION
  Report Type: Spontaneous
  Country: US (occurrence: US)
  Receive Date: 20140131
  Receipt Date: 20140131
  Transmission Date: 20141002
  Serious: No
  Sender: FDA-Public Use
  Company Number: US-GILEAD-2012-0064442

PATIENT
  Sex: Male

DRUGS (1)
  1. CAYSTON [Suspect]
     Indication: CYSTIC FIBROSIS
     Dosage: UNK, TID
     Route: 055

REACTIONS (5)
  - Throat tightness [Recovered/Resolved]
  - Swollen tongue [Unknown]
  - Glossodynia [Unknown]
  - Hypoaesthesia oral [Unknown]
  - Oropharyngeal pain [Unknown]
